FAERS Safety Report 9650312 (Version 2)
Quarter: 2013Q4

REPORT INFORMATION
  Report Type: Spontaneous
  Country: US (occurrence: US)
  Receive Date: 20131028
  Receipt Date: 20131028
  Transmission Date: 20140711
  Serious: Yes (Other)
  Sender: FDA-Public Use
  Company Number: US-NAPPMUNDI-USA-2012-0092473

PATIENT
  Sex: Male

DRUGS (2)
  1. OXYCONTIN (NDA 22-272) [Suspect]
     Indication: PAIN
     Dosage: 80 MG, TID
     Route: 048
  2. OXYCODONE HYDROCHLORIDE (SIMILAR TO NDA 22-272) [Suspect]
     Indication: PAIN
     Dosage: 30 MG, TID
     Route: 048

REACTIONS (17)
  - Respiratory arrest [Unknown]
  - Drug rehabilitation [Unknown]
  - Self-medication [Unknown]
  - Frequent bowel movements [Unknown]
  - Drug ineffective [Unknown]
  - Pain in extremity [Unknown]
  - Drug effect decreased [Unknown]
  - Anxiety [Unknown]
  - Abdominal discomfort [Unknown]
  - Faeces soft [Unknown]
  - Drug withdrawal syndrome [Not Recovered/Not Resolved]
  - Inadequate analgesia [Unknown]
  - Pain [Unknown]
  - Somnolence [Unknown]
  - Product quality issue [Unknown]
  - Feeling cold [Unknown]
  - Visual impairment [Unknown]
